FAERS Safety Report 10347575 (Version 2)
Quarter: 2014Q3

REPORT INFORMATION
  Report Type: Spontaneous
  Country: US (occurrence: None)
  Receive Date: 20140725
  Receipt Date: 20140922
  Transmission Date: 20150326
  Serious: Yes (Other)
  Sender: FDA-Public Use
  Company Number: 2014-20028

PATIENT
  Age: 78 Year
  Sex: Male
  Weight: 70 kg

DRUGS (5)
  1. ZIOPTAN [Suspect]
     Active Substance: TAFLUPROST
     Dosage: OPTHALMIC
  2. AVASTIN (SIMVASTATIN) [Concomitant]
     Active Substance: SIMVASTATIN
  3. EYLEA [Suspect]
     Active Substance: AFLIBERCEPT
     Indication: AGE-RELATED MACULAR DEGENERATION
     Dosage: EVERY 2 MONTHS
     Route: 031
     Dates: start: 201210
  4. EYLEA [Suspect]
     Active Substance: AFLIBERCEPT
     Dosage: EVERY 2 MONTHS
     Route: 031
     Dates: start: 201210
  5. LUMIGAN [Suspect]
     Active Substance: BIMATOPROST
     Dosage: OPTHALMIC

REACTIONS (4)
  - Arrhythmia [None]
  - Intraocular pressure increased [None]
  - Eye haemorrhage [None]
  - Neovascularisation [None]

NARRATIVE: CASE EVENT DATE: 20140721
